FAERS Safety Report 6826907-3 (Version None)
Quarter: 2010Q3

REPORT INFORMATION
  Report Type: 
  Country: None (occurrence: None)
  Receive Date: 20100709
  Receipt Date: 20100621
  Transmission Date: 20110219
  Serious: Yes (Other)
  Sender: FDA-Public Use
  Company Number: DE-ROCHE-713655

PATIENT
  Age: 45 Year
  Sex: Male

DRUGS (1)
  1. MIRCERA [Suspect]
     Indication: GLOMERULONEPHRITIS
     Route: 065
     Dates: start: 20090601

REACTIONS (2)
  - HAEMOGLOBIN DECREASED [None]
  - PARKINSON'S DISEASE [None]
